FAERS Safety Report 5692014-9 (Version None)
Quarter: 2008Q2

REPORT INFORMATION
  Report Type: 
  Country: None (occurrence: None)
  Receive Date: 20080402
  Receipt Date: 20080327
  Transmission Date: 20081010
  Serious: Yes (Other)
  Sender: FDA-Public Use
  Company Number: SE-MERCK-0803SWE00048

PATIENT
  Age: 30 Year
  Sex: Male

DRUGS (2)
  1. PROPECIA [Suspect]
     Indication: ALOPECIA AREATA
     Route: 048
     Dates: start: 20051201, end: 20061201
  2. METOPROLOL SUCCINATE [Concomitant]
     Route: 048

REACTIONS (3)
  - ERECTILE DYSFUNCTION [None]
  - LIBIDO DECREASED [None]
  - SPERMATOGENESIS ABNORMAL [None]
